FAERS Safety Report 11098970 (Version 2)
Quarter: 2015Q2

REPORT INFORMATION
  Report Type: Spontaneous
  Country: LV (occurrence: LV)
  Receive Date: 20150508
  Receipt Date: 20150512
  Transmission Date: 20150821
  Serious: Yes (Other)
  Sender: FDA-Public Use
  Company Number: LV-ROCHE-1574801

PATIENT
  Age: 66 Year
  Sex: Female
  Weight: 69 kg

DRUGS (1)
  1. HERCEPTIN [Suspect]
     Active Substance: TRASTUZUMAB
     Indication: BREAST CANCER
     Dosage: FIRST DOSE 500 MG, FOLLOWING 2.-14.COURSES -400 MG
     Route: 042
     Dates: start: 20140708, end: 20150409

REACTIONS (4)
  - Stomatitis [Recovered/Resolved]
  - Conjunctivitis [Recovered/Resolved]
  - Epistaxis [Not Recovered/Not Resolved]
  - Deafness [Not Recovered/Not Resolved]

NARRATIVE: CASE EVENT DATE: 201502
